FAERS Safety Report 4394728-X (Version None)
Quarter: 2004Q3

REPORT INFORMATION
  Report Type: 
  Country: None (occurrence: None)
  Receive Date: 20040712
  Receipt Date: 20040629
  Transmission Date: 20050211
  Serious: Yes (Hospitalization, Other)
  Sender: FDA-Public Use
  Company Number: PHBS2004JP08725

PATIENT
  Age: 52 Year
  Sex: Male

DRUGS (2)
  1. RITALIN [Suspect]
     Route: 048
     Dates: end: 20020101
  2. RITALIN [Suspect]
     Dosage: 50 DF, QD
     Route: 048
     Dates: end: 20020101

REACTIONS (5)
  - AGGRESSION [None]
  - DRUG DEPENDENCE [None]
  - GAIT DISTURBANCE [None]
  - PARKINSON'S DISEASE [None]
  - TREMOR [None]
